FAERS Safety Report 8400064 (Version 5)
Quarter: 2014Q1

REPORT INFORMATION
  Report Type: Spontaneous
  Country: US (occurrence: US)
  Receive Date: 20120210
  Receipt Date: 20140326
  Transmission Date: 20141002
  Serious: Yes (Hospitalization, Other)
  Sender: FDA-Public Use
  Company Number: US-PFIZER INC-2012036233

PATIENT
  Age: 44 Year
  Sex: Female

DRUGS (5)
  1. CHANTIX [Suspect]
     Dosage: UNK
     Dates: start: 20070712, end: 20080308
  2. CHANTIX [Suspect]
     Dosage: 1 MG, UNK
     Dates: start: 20071022
  3. TRAMADOL HYDROCHLORIDE [Suspect]
     Dosage: UNK
  4. ELAVIL [Concomitant]
     Dosage: 50 MG, 1X/DAY
  5. KLONOPIN [Concomitant]
     Dosage: 0.5 MG, 3X/DAY

REACTIONS (5)
  - Intentional overdose [Unknown]
  - Suicide attempt [Unknown]
  - Suicide attempt [Unknown]
  - Convulsion [Unknown]
  - Tooth loss [Unknown]
